FAERS Safety Report 11282006 (Version 1)
Quarter: 2015Q3

REPORT INFORMATION
  Report Type: Spontaneous
  Country: CN (occurrence: CN)
  Receive Date: 20150718
  Receipt Date: 20150718
  Transmission Date: 20151125
  Serious: Yes (Other)
  Sender: FDA-Public Use
  Company Number: CN-JNJFOC-20150705281

PATIENT
  Age: 28 Year
  Sex: Male
  Weight: 65 kg

DRUGS (4)
  1. AZITHROMYCIN [Suspect]
     Active Substance: AZITHROMYCIN ANHYDROUS
     Indication: TONSILLITIS
     Route: 048
     Dates: start: 20141213, end: 20141217
  2. QINGREJIEDUPIAN [Concomitant]
     Indication: NASOPHARYNGITIS
     Route: 048
     Dates: start: 20141217, end: 20141223
  3. QINGREJIEDUPIAN [Concomitant]
     Indication: TONSILLITIS
     Route: 048
     Dates: start: 20141217, end: 20141223
  4. TYLENOL [Suspect]
     Active Substance: ACETAMINOPHEN
     Indication: NASOPHARYNGITIS
     Route: 048
     Dates: start: 20141213, end: 20141217

REACTIONS (5)
  - Erythema [Recovered/Resolved]
  - Pigmentation disorder [Recovered/Resolved]
  - Rash [Recovered/Resolved]
  - Pruritus [Recovered/Resolved]
  - Skin exfoliation [None]

NARRATIVE: CASE EVENT DATE: 20141217
